FAERS Safety Report 14030916 (Version 3)
Quarter: 2019Q2

REPORT INFORMATION
  Report Type: Spontaneous
  Country: IT (occurrence: IT)
  Receive Date: 20171002
  Receipt Date: 20190524
  Transmission Date: 20190711
  Serious: Yes (Hospitalization)
  Sender: FDA-Public Use
  Company Number: IT-ROCHE-1999491

PATIENT
  Age: 38 Year
  Sex: Female

DRUGS (5)
  1. ANTABUSE [Suspect]
     Active Substance: DISULFIRAM
     Indication: PRODUCT USED FOR UNKNOWN INDICATION
     Dosage: ^400 MG EFFERVESCENT TABLETS^
     Route: 048
     Dates: start: 20170612, end: 20170612
  2. SEREUPIN [Suspect]
     Active Substance: PAROXETINE HYDROCHLORIDE
     Indication: PRODUCT USED FOR UNKNOWN INDICATION
     Dosage: ^20 MG FILM-COATED TABLETS^
     Route: 048
     Dates: start: 20170612, end: 20170612
  3. MORPHINE SULFATE. [Suspect]
     Active Substance: MORPHINE SULFATE
     Indication: PRODUCT USED FOR UNKNOWN INDICATION
     Route: 048
     Dates: start: 20170612, end: 20170612
  4. ALCOVER [Suspect]
     Active Substance: SODIUM OXYBATE
     Indication: PRODUCT USED FOR UNKNOWN INDICATION
     Dosage: ^17.5% ORAL SOLUTION^12 VIALS
     Route: 048
     Dates: start: 20170612, end: 20170612
  5. RIVOTRIL [Suspect]
     Active Substance: CLONAZEPAM
     Indication: PRODUCT USED FOR UNKNOWN INDICATION
     Dosage: ^2.5MG/ML ORAL DROPS, SOLUTION^
     Route: 048
     Dates: start: 20170612, end: 20170612

REACTIONS (5)
  - Coma [Unknown]
  - Coma scale abnormal [Unknown]
  - Intentional self-injury [Unknown]
  - Drug abuse [Unknown]
  - Toxicologic test abnormal [Unknown]

NARRATIVE: CASE EVENT DATE: 20170612
